FAERS Safety Report 14347404 (Version 1)
Quarter: 2018Q1

REPORT INFORMATION
  Report Type: Spontaneous
  Country: US (occurrence: US)
  Receive Date: 20180102
  Receipt Date: 20180102
  Transmission Date: 20180509
  Serious: Yes (Disabling)
  Sender: FDA-Public Use
  Company Number: None

PATIENT
  Sex: Male
  Weight: 78.75 kg

DRUGS (3)
  1. LISINOPRIL. [Concomitant]
     Active Substance: LISINOPRIL
  2. WARFARIN [Concomitant]
     Active Substance: WARFARIN
  3. AMIODARONE [Suspect]
     Active Substance: AMIODARONE
     Indication: CARDIAC OPERATION
     Dosage: ?          QUANTITY:1 TABLET(S);?
     Route: 048
     Dates: start: 20170822, end: 20171018

REACTIONS (5)
  - Dyspnoea [None]
  - Peripheral swelling [None]
  - Drug administered to patient of inappropriate age [None]
  - Cough [None]
  - Urticaria [None]

NARRATIVE: CASE EVENT DATE: 20171001
